FAERS Safety Report 25282574 (Version 1)
Quarter: 2025Q2

REPORT INFORMATION
  Report Type: Spontaneous
  Country: AU (occurrence: AU)
  Receive Date: 20250508
  Receipt Date: 20250508
  Transmission Date: 20250716
  Serious: Yes (Death, Other)
  Sender: GALPHARM INTERNATIONAL
  Company Number: None

PATIENT
  Age: 47 Year
  Sex: Male

DRUGS (1)
  1. ACETAMINOPHEN [Suspect]
     Active Substance: ACETAMINOPHEN
     Indication: Pain
     Route: 065

REACTIONS (10)
  - Acute hepatic failure [Fatal]
  - Anxiety [Fatal]
  - Constipation [Fatal]
  - Coordination abnormal [Fatal]
  - Dizziness [Fatal]
  - Dysphagia [Fatal]
  - Dyspnoea [Fatal]
  - Dysuria [Fatal]
  - Prescribed overdose [Fatal]
  - Thinking abnormal [Fatal]
